FAERS Safety Report 11011019 (Version 3)
Quarter: 2015Q3

REPORT INFORMATION
  Report Type: Spontaneous
  Country: US (occurrence: US)
  Receive Date: 20150410
  Receipt Date: 20150716
  Transmission Date: 20151125
  Serious: No
  Sender: FDA-Public Use
  Company Number: US-PFIZER INC-2015097569

PATIENT
  Age: 35 Year
  Sex: Female

DRUGS (3)
  1. SUTENT [Suspect]
     Active Substance: SUNITINIB MALATE
     Dosage: 50 MG, DAILY FOR 28 DAYS ON AND 14 OFF
     Dates: start: 20150320, end: 20150601
  2. HYDROCODONE BITARTRATE AND ACETAMINOPHEN [Concomitant]
     Active Substance: ACETAMINOPHEN\HYDROCODONE BITARTRATE
     Indication: PAIN
     Dosage: 1 DF, AS NEEDED (1 TABLET EVERY 4 HOURS AS NEEDED)
     Dates: start: 20150402
  3. SUTENT [Suspect]
     Active Substance: SUNITINIB MALATE
     Indication: SARCOMA
     Dosage: 50 MG, DAILY FOR 4 WEEKS ON, 2 WEEKS OFF
     Route: 048
     Dates: start: 20150319

REACTIONS (13)
  - Product use issue [Unknown]
  - Sarcoma [Unknown]
  - Alopecia [Unknown]
  - Asthenia [Unknown]
  - Dry skin [Unknown]
  - Skin exfoliation [Unknown]
  - Pruritus [Unknown]
  - Platelet count decreased [Recovered/Resolved]
  - Disease progression [Unknown]
  - Dysgeusia [Unknown]
  - Stomatitis [Unknown]
  - Fatigue [Unknown]
  - Oral pain [Unknown]

NARRATIVE: CASE EVENT DATE: 2015
